FAERS Safety Report 9161453 (Version 1)
Quarter: 2013Q1

REPORT INFORMATION
  Report Type: Other
  Country: GB (occurrence: GB)
  Receive Date: 20130313
  Receipt Date: 20130313
  Transmission Date: 20140127
  Serious: Yes (Hospitalization)
  Sender: FDA-Public Use
  Company Number: GB-WATSON-2013-03830

PATIENT
  Age: 40 Year
  Sex: Female

DRUGS (1)
  1. DICLOFENAC (UNKNOWN) [Suspect]
     Indication: METATARSALGIA
     Dosage: CAN^T REMEMBER
     Route: 048

REACTIONS (4)
  - Convulsion [Unknown]
  - Dizziness [Unknown]
  - Heart rate decreased [Unknown]
  - Malaise [Unknown]
